FAERS Safety Report 21483130 (Version 1)
Quarter: 2022Q4

REPORT INFORMATION
  Report Type: Spontaneous
  Country: CN (occurrence: CN)
  Receive Date: 20221020
  Receipt Date: 20221020
  Transmission Date: 20230113
  Serious: Yes (Hospitalization)
  Sender: FDA-Public Use
  Company Number: CN-BAYER-2022A142871

PATIENT
  Age: 89 Year
  Sex: Female
  Weight: 55 kg

DRUGS (2)
  1. XARELTO [Suspect]
     Active Substance: RIVAROXABAN
     Indication: Venous thrombosis limb
     Dosage: 10 MG, QD
     Route: 048
     Dates: start: 20220809, end: 20220811
  2. XARELTO [Suspect]
     Active Substance: RIVAROXABAN
     Indication: Venous thrombosis limb
     Dosage: 10 MG, QD
     Route: 048
     Dates: start: 20220814, end: 20220816

REACTIONS (5)
  - Urinary tract infection [Unknown]
  - Haematuria [Recovered/Resolved]
  - Haematuria [Recovered/Resolved]
  - Prescribed underdose [Unknown]
  - Underdose [Unknown]

NARRATIVE: CASE EVENT DATE: 20220809
